FAERS Safety Report 5803283-6 (Version None)
Quarter: 2008Q3

REPORT INFORMATION
  Report Type: 
  Country: None (occurrence: None)
  Receive Date: 20080708
  Receipt Date: 20080702
  Transmission Date: 20090109
  Serious: Yes (Other)
  Sender: FDA-Public Use
  Company Number: A0735842A

PATIENT

DRUGS (2)
  1. ADVAIR DISKUS 100/50 [Suspect]
     Indication: COUGH
     Route: 055
  2. DOXYCYCLIN [Suspect]
     Indication: DRUG USE FOR UNKNOWN INDICATION
     Route: 065

REACTIONS (2)
  - OROPHARYNGEAL BLISTERING [None]
  - STEVENS-JOHNSON SYNDROME [None]
